APPROVED DRUG PRODUCT: OSELTAMIVIR PHOSPHATE
Active Ingredient: OSELTAMIVIR PHOSPHATE
Strength: EQ 30MG BASE
Dosage Form/Route: CAPSULE;ORAL
Application: A217274 | Product #001 | TE Code: AB
Applicant: SHANDONG NEW TIME PHARMACEUTICAL CO LTD
Approved: Jul 9, 2025 | RLD: No | RS: No | Type: RX